FAERS Safety Report 17802215 (Version 3)
Quarter: 2020Q2

REPORT INFORMATION
  Report Type: Spontaneous
  Country: US (occurrence: US)
  Receive Date: 20200519
  Receipt Date: 20200610
  Transmission Date: 20200714
  Serious: Yes (Other)
  Sender: FDA-Public Use
  Company Number: US-PFIZER INC-2020195815

PATIENT
  Age: 69 Year
  Sex: Male

DRUGS (2)
  1. BOSULIF [Suspect]
     Active Substance: BOSUTINIB MONOHYDRATE
     Indication: CHRONIC MYELOID LEUKAEMIA
     Dosage: 500 MG, DAILY
     Dates: start: 20200508
  2. BOSULIF [Suspect]
     Active Substance: BOSUTINIB MONOHYDRATE
     Dosage: 500 MG, DAILY
     Dates: start: 20200601

REACTIONS (13)
  - Intentional product misuse [Unknown]
  - Renal impairment [Unknown]
  - Vomiting [Unknown]
  - Malaise [Unknown]
  - Head discomfort [Unknown]
  - Abdominal discomfort [Unknown]
  - Nausea [Unknown]
  - Insomnia [Unknown]
  - Diarrhoea [Unknown]
  - Dizziness [Unknown]
  - Abdominal pain upper [Unknown]
  - Asthenia [Unknown]
  - Gait inability [Unknown]
